FAERS Safety Report 6935077-2 (Version None)
Quarter: 2010Q3

REPORT INFORMATION
  Report Type: 
  Country: None (occurrence: None)
  Receive Date: 20100822
  Receipt Date: 20100811
  Transmission Date: 20110219
  Serious: Yes (Death, Other)
  Sender: FDA-Public Use
  Company Number: PHHY2010US46155

PATIENT
  Sex: Male
  Weight: 50.567 kg

DRUGS (4)
  1. EXJADE [Suspect]
     Indication: SICKLE CELL ANAEMIA
     Dosage: 200 MG, QD
     Route: 048
  2. PEN-VEE K [Concomitant]
     Indication: PNEUMOCOCCAL INFECTION
     Dosage: 250 MG, BID
     Route: 048
  3. FOLIC ACID [Concomitant]
     Indication: SUPPLEMENTATION THERAPY
     Dosage: UNK
     Route: 048
     Dates: start: 19920101
  4. DEPAKOTE [Concomitant]
     Indication: CONVULSION
     Dosage: 2 TABS BID

REACTIONS (2)
  - DEATH [None]
  - SERUM FERRITIN INCREASED [None]
